FAERS Safety Report 11392184 (Version 1)
Quarter: 2015Q3

REPORT INFORMATION
  Report Type: Spontaneous
  Country: US (occurrence: None)
  Receive Date: 20150817
  Receipt Date: 20150817
  Transmission Date: 20151125
  Serious: Yes (Hospitalization)
  Sender: FDA-Public Use
  Company Number: None

PATIENT
  Age: 80 Year
  Sex: Male
  Weight: 73.6 kg

DRUGS (1)
  1. TIOTROPIUM [Suspect]
     Active Substance: TIOTROPIUM
     Indication: CHRONIC OBSTRUCTIVE PULMONARY DISEASE
     Dosage: MCG EVERY DAY INHALE
     Route: 055
     Dates: start: 20150429, end: 20150628

REACTIONS (4)
  - Asthenia [None]
  - Anaphylactic reaction [None]
  - Immobile [None]
  - Product substitution issue [None]

NARRATIVE: CASE EVENT DATE: 20150628
